FAERS Safety Report 11632297 (Version 15)
Quarter: 2017Q2

REPORT INFORMATION
  Report Type: Report from Study
  Country: LB (occurrence: LB)
  Receive Date: 20151015
  Receipt Date: 20170418
  Transmission Date: 20170829
  Serious: Yes (Hospitalization, Other)
  Sender: FDA-Public Use
  Company Number: PHHY2015LB016185

PATIENT
  Age: 40 Year
  Sex: Female

DRUGS (1)
  1. TASIGNA [Suspect]
     Active Substance: NILOTINIB
     Indication: PRODUCT USED FOR UNKNOWN INDICATION
     Dosage: 600 MG, QD
     Route: 048
     Dates: start: 201408

REACTIONS (25)
  - Dyspnoea [Unknown]
  - Headache [Recovered/Resolved]
  - Tachycardia [Not Recovered/Not Resolved]
  - Anaemia [Unknown]
  - Pain [Recovering/Resolving]
  - Thyroid disorder [Unknown]
  - Nodule [Not Recovered/Not Resolved]
  - Influenza [Not Recovered/Not Resolved]
  - Chest pain [Not Recovered/Not Resolved]
  - Musculoskeletal pain [Unknown]
  - Dizziness [Recovered/Resolved]
  - Cyst [Recovered/Resolved]
  - Acute pulmonary oedema [Recovering/Resolving]
  - Bone pain [Not Recovered/Not Resolved]
  - Iron deficiency [Not Recovered/Not Resolved]
  - Pain in extremity [Not Recovered/Not Resolved]
  - Skin texture abnormal [Not Recovered/Not Resolved]
  - Abdominal distension [Not Recovered/Not Resolved]
  - Dermatitis allergic [Not Recovered/Not Resolved]
  - Pyrexia [Recovering/Resolving]
  - Lymphadenopathy [Not Recovered/Not Resolved]
  - Fatigue [Recovered/Resolved]
  - Rash [Unknown]
  - Peripheral swelling [Unknown]
  - Fluid retention [Unknown]

NARRATIVE: CASE EVENT DATE: 20150322
